FAERS Safety Report 8329776-8 (Version None)
Quarter: 2012Q2

REPORT INFORMATION
  Report Type: 
  Country: None (occurrence: None)
  Receive Date: 20120502
  Receipt Date: 20120425
  Transmission Date: 20120825
  Serious: Yes (Other)
  Sender: FDA-Public Use
  Company Number: GB-AMGEN-GBRSP2012026282

PATIENT

DRUGS (1)
  1. NEUPOGEN [Suspect]
     Indication: HAEMORRHAGIC STROKE
     Dosage: 10 MUG/KG, UNK
     Route: 058

REACTIONS (4)
  - PULMONARY EMBOLISM [None]
  - LIVER FUNCTION TEST ABNORMAL [None]
  - DEEP VEIN THROMBOSIS [None]
  - ORAL CANDIDIASIS [None]
